FAERS Safety Report 25439586 (Version 2)
Quarter: 2025Q2

REPORT INFORMATION
  Report Type: Spontaneous
  Country: DE (occurrence: DE)
  Receive Date: 20250616
  Receipt Date: 20250624
  Transmission Date: 20250716
  Serious: Yes (Other)
  Sender: DR REDDYS
  Company Number: DE-RDY-DEU/2025/06/008528

PATIENT
  Age: 7 Year
  Sex: Male

DRUGS (2)
  1. CARBIDOPA\LEVODOPA [Suspect]
     Active Substance: CARBIDOPA\LEVODOPA
     Indication: Enzyme abnormality
  2. levodopa [L-dopa] [Concomitant]
     Indication: Enzyme abnormality

REACTIONS (1)
  - Drug ineffective for unapproved indication [Unknown]
